FAERS Safety Report 26118167 (Version 1)
Quarter: 2025Q4

REPORT INFORMATION
  Report Type: Report from Study
  Country: US (occurrence: US)
  Receive Date: 20251203
  Receipt Date: 20251203
  Transmission Date: 20260119
  Serious: No
  Sender: MALLINCKRODT
  Company Number: US-MALLINCKRODT-MNK202507423

PATIENT
  Sex: Female

DRUGS (2)
  1. CORTICOTROPIN [Suspect]
     Active Substance: CORTICOTROPIN
     Indication: Systemic lupus erythematosus
     Dosage: UNKNOWN
  2. SAPHNELO [Concomitant]
     Active Substance: ANIFROLUMAB-FNIA
     Dosage: UNKNOWN

REACTIONS (2)
  - Nausea [Recovered/Resolved]
  - Headache [Unknown]
